FAERS Safety Report 22108735 (Version 7)
Quarter: 2023Q2

REPORT INFORMATION
  Report Type: Report from Study
  Country: CA (occurrence: CA)
  Receive Date: 20230317
  Receipt Date: 20230612
  Transmission Date: 20230722
  Serious: Yes (Other)
  Sender: FDA-Public Use
  Company Number: CA-KOREA IPSEN Pharma-2023-03720

PATIENT
  Age: 83 Year
  Sex: Female

DRUGS (8)
  1. LANREOTIDE ACETATE [Suspect]
     Active Substance: LANREOTIDE ACETATE
     Indication: Carcinoid syndrome
     Dosage: 120 MG, EVERY 4 WEEKS
     Route: 058
     Dates: start: 20230113
  2. LANREOTIDE ACETATE [Suspect]
     Active Substance: LANREOTIDE ACETATE
     Dosage: 120 MG, EVERY 4 WEEKS
     Route: 058
     Dates: start: 20230113
  3. BASAGLAR [Concomitant]
     Active Substance: INSULIN GLARGINE
  4. REPAGLINIDE [Concomitant]
     Active Substance: REPAGLINIDE
  5. VITAMIN D [Concomitant]
     Active Substance: VITAMIN D NOS
  6. OMEGA 3 [Concomitant]
     Active Substance: CAPSAICIN
  7. PERINDOPRIL [Concomitant]
     Active Substance: PERINDOPRIL
  8. GRAVOL [Concomitant]
     Active Substance: DIMENHYDRINATE

REACTIONS (24)
  - Neoplasm malignant [Unknown]
  - Vomiting [Recovered/Resolved]
  - Abdominal discomfort [Recovered/Resolved]
  - Abdominal pain [Recovered/Resolved]
  - Sleep disorder [Recovered/Resolved]
  - Tension [Unknown]
  - Hypertension [Not Recovered/Not Resolved]
  - Biliary colic [Unknown]
  - Abdominal pain [Recovered/Resolved]
  - Pain [Recovered/Resolved]
  - Limb discomfort [Not Recovered/Not Resolved]
  - Heart rate decreased [Unknown]
  - Vital functions abnormal [Unknown]
  - Rash [Recovering/Resolving]
  - Steatorrhoea [Recovering/Resolving]
  - Constipation [Recovered/Resolved]
  - Flatulence [Unknown]
  - Abdominal pain [Recovered/Resolved]
  - Nausea [Recovered/Resolved]
  - Fatigue [Recovered/Resolved]
  - Nausea [Recovering/Resolving]
  - Pain [Recovering/Resolving]
  - Hypertension [Not Recovered/Not Resolved]
  - Dizziness [Recovered/Resolved]

NARRATIVE: CASE EVENT DATE: 20230101
